FAERS Safety Report 8080970-3 (Version None)
Quarter: 2012Q1

REPORT INFORMATION
  Report Type: 
  Country: None (occurrence: None)
  Receive Date: 20120130
  Receipt Date: 20120118
  Transmission Date: 20120608
  Serious: Yes (Hospitalization)
  Sender: FDA-Public Use
  Company Number: PT-MERCK-1107PRT00010B1

PATIENT
  Age: 0 Day
  Sex: Male
  Weight: 4 kg

DRUGS (5)
  1. EMTRICITABINE AND TENOFOVIR DISOPROXIL FUMARATE [Concomitant]
     Route: 064
     Dates: start: 20110214
  2. ISENTRESS [Suspect]
     Indication: HIV INFECTION
     Route: 064
     Dates: start: 20110214
  3. RITONAVIR [Concomitant]
     Route: 064
     Dates: start: 20110214
  4. DARUNAVIR [Concomitant]
     Route: 064
     Dates: start: 20110214
  5. ZIDOVUDINE [Suspect]
     Route: 065
     Dates: start: 20110214

REACTIONS (2)
  - PNEUMONIA [None]
  - RESPIRATORY DISTRESS [None]
